FAERS Safety Report 9771091 (Version 2)
Quarter: 2014Q1

REPORT INFORMATION
  Report Type: Spontaneous
  Country: US (occurrence: US)
  Receive Date: 20131218
  Receipt Date: 20140122
  Transmission Date: 20141002
  Serious: Yes (Death)
  Sender: FDA-Public Use
  Company Number: US-PFIZER INC-2013359890

PATIENT
  Age: 38 Year
  Sex: Female

DRUGS (1)
  1. SOMAVERT [Suspect]
     Dosage: 10 MG, DAILY (7 DAYS A WEEK)
     Dates: start: 200411

REACTIONS (1)
  - Breast cancer metastatic [Fatal]
